FAERS Safety Report 13084805 (Version 1)
Quarter: 2017Q1

REPORT INFORMATION
  Report Type: Spontaneous
  Country: IT (occurrence: IT)
  Receive Date: 20170104
  Receipt Date: 20170104
  Transmission Date: 20170428
  Serious: Yes (Life-Threatening, Hospitalization)
  Sender: FDA-Public Use
  Company Number: IT-TEVA-2010005656

PATIENT
  Age: 63 Year
  Sex: Male

DRUGS (8)
  1. CARBOLITHIUM [Suspect]
     Active Substance: LITHIUM CARBONATE
     Indication: DEPRESSION
     Dosage: 900 MILLIGRAM DAILY;
     Route: 048
     Dates: start: 20081001, end: 20101004
  2. LORAZEPAM. [Concomitant]
     Active Substance: LORAZEPAM
  3. CARBOLITHIUM [Suspect]
     Active Substance: LITHIUM CARBONATE
     Indication: ANXIETY
     Route: 048
     Dates: start: 2000
  4. ZYPREXA [Suspect]
     Active Substance: OLANZAPINE
     Indication: ANXIETY
  5. LANSOPRAZOLO [Concomitant]
     Active Substance: LANSOPRAZOLE
  6. BISOPROLOLO [Concomitant]
     Active Substance: BISOPROLOL FUMARATE
  7. CIPRALEX [Suspect]
     Active Substance: ESCITALOPRAM OXALATE
     Indication: ANXIETY
     Dosage: 15 MILLIGRAM DAILY;
     Route: 048
     Dates: start: 20100901, end: 20101004
  8. ZYPREXA [Suspect]
     Active Substance: OLANZAPINE
     Indication: DEPRESSION
     Dosage: 10 MILLIGRAM DAILY;
     Route: 048
     Dates: start: 20100801, end: 20101004

REACTIONS (4)
  - Musculoskeletal stiffness [Recovering/Resolving]
  - Tremor [Recovering/Resolving]
  - Rhabdomyolysis [Recovering/Resolving]
  - Depressed level of consciousness [Recovering/Resolving]

NARRATIVE: CASE EVENT DATE: 20101005
